FAERS Safety Report 5055306-2 (Version None)
Quarter: 2006Q3

REPORT INFORMATION
  Report Type: 
  Country: None (occurrence: None)
  Receive Date: 20060714
  Receipt Date: 20060628
  Transmission Date: 20061208
  Serious: Yes (Hospitalization)
  Sender: FDA-Public Use
  Company Number: DSA_28211_2006

PATIENT
  Sex: Female
  Weight: 3 kg

DRUGS (9)
  1. LORAZEPAM [Suspect]
     Dosage: 1 MG Q DAY TRAN-P
     Route: 064
     Dates: start: 20060215, end: 20060302
  2. LORAZEPAM [Suspect]
     Dosage: 1.5 MG Q DAY TRAN-P
     Route: 064
     Dates: start: 20060303, end: 20060303
  3. LORAZEPAM [Suspect]
     Dosage: 0.5 MG Q DAY TRAN-P
     Route: 064
     Dates: start: 20060305, end: 20060308
  4. LORAZEPAM [Suspect]
     Dosage: 1.5 MG Q DAY TRAN-P
     Route: 064
     Dates: start: 20060314
  5. PAXIL [Suspect]
     Dosage: 10 MG Q DAY TRAN-P
     Route: 064
     Dates: start: 20060311, end: 20060312
  6. PAXIL [Suspect]
     Dosage: 20 MG Q DAY TRAN-P
     Route: 064
     Dates: start: 20060313
  7. BENZALIN [Suspect]
     Dosage: 5 MG Q DAY TRAN-P
     Route: 064
     Dates: start: 20060311
  8. BENZALIN [Suspect]
     Dosage: 10 MG Q DAY TRAN-P
  9. LENDORMIN [Suspect]
     Dosage: 0.25 MG Q DAY TRAN-P
     Route: 064

REACTIONS (7)
  - CAESAREAN SECTION [None]
  - DRUG EXPOSURE DURING PREGNANCY [None]
  - FEEDING DISORDER NEONATAL [None]
  - HYPERSOMNIA [None]
  - HYPOKINESIA NEONATAL [None]
  - NEONATAL DISORDER [None]
  - POOR SUCKING REFLEX [None]
